FAERS Safety Report 6434994-X (Version None)
Quarter: 2009Q4

REPORT INFORMATION
  Report Type: 
  Country: None (occurrence: None)
  Receive Date: 20091110
  Receipt Date: 20091027
  Transmission Date: 20100525
  Serious: Yes (Other)
  Sender: FDA-Public Use
  Company Number: PHEH2007US08015

PATIENT
  Sex: Female
  Weight: 117.1 kg

DRUGS (28)
  1. AREDIA [Suspect]
     Indication: BREAST CANCER
     Dosage: 90 MG, OVER 2 HRS
     Route: 042
     Dates: start: 20020101, end: 20040101
  2. AREDIA [Suspect]
     Indication: BONE PAIN
  3. ZOMETA [Suspect]
     Indication: BREAST CANCER
     Dosage: UNK
     Dates: start: 20040101, end: 20060101
  4. CLINDAMYCIN [Concomitant]
  5. FEMARA [Concomitant]
     Dosage: 2.5 MG, QD
  6. PREDNISONE [Concomitant]
  7. PROPRANOLOL [Concomitant]
  8. DYAZIDE [Concomitant]
  9. PAXIL [Concomitant]
  10. XANAX [Concomitant]
  11. IMIPRAMINE [Concomitant]
  12. RANITIDINE [Concomitant]
  13. GLUCOSAMINE [Concomitant]
  14. MINOCYCLINE [Concomitant]
  15. VICODIN [Concomitant]
  16. BIAXIN [Concomitant]
  17. SYNVISC [Concomitant]
  18. LODINE [Concomitant]
  19. LEVAQUIN [Concomitant]
  20. PERIDEX [Concomitant]
  21. BEXTRA [Concomitant]
  22. TAMOXIFEN CITRATE [Concomitant]
  23. TRIAMCINOLONE [Concomitant]
     Dosage: TID
  24. DESONIDE [Concomitant]
     Dosage: UNK
  25. ALPRAZOLAM [Concomitant]
     Dosage: UNK
  26. ZITHROMAX [Concomitant]
     Dosage: UNK
  27. CALCIUM [Concomitant]
     Dosage: UNK
  28. DAYPRO [Concomitant]
     Dosage: UNK

REACTIONS (44)
  - ABSCESS JAW [None]
  - ANAEMIA [None]
  - ANXIETY [None]
  - ARTHRITIS [None]
  - BASAL CELL CARCINOMA [None]
  - BONE DISORDER [None]
  - COLON CANCER [None]
  - CRYOTHERAPY [None]
  - DEFORMITY [None]
  - DEPRESSION [None]
  - DYSGEUSIA [None]
  - EMOTIONAL DISTRESS [None]
  - ESSENTIAL HYPERTENSION [None]
  - FATIGUE [None]
  - FIBROMYALGIA [None]
  - GALLBLADDER DISORDER [None]
  - GINGIVAL PAIN [None]
  - GINGIVAL SWELLING [None]
  - HAEMORRHOIDS [None]
  - HYPOPHAGIA [None]
  - INTESTINAL OBSTRUCTION [None]
  - JAW OPERATION [None]
  - LAPAROTOMY [None]
  - LIMB INJURY [None]
  - OBESITY [None]
  - OEDEMA PERIPHERAL [None]
  - ORAL PAIN [None]
  - OSTEOARTHRITIS [None]
  - OSTEOMYELITIS [None]
  - OSTEONECROSIS [None]
  - PAIN [None]
  - PALPITATIONS [None]
  - PANIC DISORDER [None]
  - POLYMYALGIA RHEUMATICA [None]
  - RENAL IMPAIRMENT [None]
  - SEBORRHOEIC KERATOSIS [None]
  - SKIN LESION [None]
  - STOMATITIS [None]
  - SYSTEMIC LUPUS ERYTHEMATOSUS [None]
  - TONSILLAR DISORDER [None]
  - TOOTH DISORDER [None]
  - TOOTH EXTRACTION [None]
  - TOOTH LOSS [None]
  - VEIN DISORDER [None]
